FAERS Safety Report 18614837 (Version 1)
Quarter: 2020Q4

REPORT INFORMATION
  Report Type: Spontaneous
  Country: US (occurrence: US)
  Receive Date: 20201214
  Receipt Date: 20201214
  Transmission Date: 20210114
  Serious: No
  Sender: FDA-Public Use
  Company Number: US-TAKEDA-2020TUS054673

PATIENT
  Sex: Male
  Weight: 117.91 kg

DRUGS (16)
  1. OMEPRAZOLE. [Concomitant]
     Active Substance: OMEPRAZOLE
  2. CUVITRU [Suspect]
     Active Substance: HUMAN IMMUNOGLOBULIN G
     Indication: IMMUNODEFICIENCY COMMON VARIABLE
     Dosage: 11 GRAM, 1/WEEK
     Route: 058
     Dates: start: 20200406
  3. SEREVENT DISKUS [Concomitant]
     Active Substance: SALMETEROL XINAFOATE
  4. MONTELUKAST [Concomitant]
     Active Substance: MONTELUKAST SODIUM
  5. LMX4 [Concomitant]
     Active Substance: LIDOCAINE
  6. DULERA [Concomitant]
     Active Substance: FORMOTEROL FUMARATE DIHYDRATE\MOMETASONE FUROATE
  7. LOSARTAN. [Concomitant]
     Active Substance: LOSARTAN
  8. ASPIRIN. [Concomitant]
     Active Substance: ASPIRIN
  9. PULMICORT TURBUHALER [Concomitant]
     Active Substance: BUDESONIDE
  10. EPINEPHRINE. [Concomitant]
     Active Substance: EPINEPHRINE
  11. ATORVASTATIN [Concomitant]
     Active Substance: ATORVASTATIN
  12. FLUTICASONE. [Concomitant]
     Active Substance: FLUTICASONE
  13. ACETAMINOPHEN. [Concomitant]
     Active Substance: ACETAMINOPHEN
  14. DIPHENHYDRAMINE. [Concomitant]
     Active Substance: DIPHENHYDRAMINE
  15. TAMSULOSIN [Concomitant]
     Active Substance: TAMSULOSIN
  16. PREDNISONE. [Concomitant]
     Active Substance: PREDNISONE

REACTIONS (1)
  - Restlessness [Unknown]
